FAERS Safety Report 4356635-8 (Version None)
Quarter: 2004Q2

REPORT INFORMATION
  Report Type: 
  Country: None (occurrence: None)
  Receive Date: 20040506
  Receipt Date: 20040423
  Transmission Date: 20050107
  Serious: Yes (Life-Threatening)
  Sender: FDA-Public Use
  Company Number: 205801

PATIENT
  Age: 78 Year
  Sex: Female

DRUGS (1)
  1. ACTILYSE(ALTEPLASE) PWDR + SOLVENT, INFUSION SOLN [Suspect]
     Indication: ISCHAEMIC STROKE
     Dosage: 70 MG, SINGLE, INTRAVENOUS
     Route: 042
     Dates: start: 20040311, end: 20040311

REACTIONS (1)
  - ANAPHYLACTIC REACTION [None]
